FAERS Safety Report 4849129-4 (Version None)
Quarter: 2005Q4

REPORT INFORMATION
  Report Type: 
  Country: None (occurrence: None)
  Receive Date: 20051209
  Receipt Date: 20051130
  Transmission Date: 20060501
  Serious: Yes (Other)
  Sender: FDA-Public Use
  Company Number: GB-GLAXOSMITHKLINE-B0403030A

PATIENT
  Sex: Female

DRUGS (3)
  1. SEROXAT [Suspect]
     Route: 065
  2. ZOPICLONE [Concomitant]
     Route: 065
  3. CYCLOPROGYNOVA [Concomitant]
     Route: 065

REACTIONS (2)
  - AGGRESSION [None]
  - COMPLETED SUICIDE [None]
